FAERS Safety Report 10346910 (Version 2)
Quarter: 2014Q4

REPORT INFORMATION
  Report Type: Report from Study
  Country: US (occurrence: US)
  Receive Date: 20140729
  Receipt Date: 20141114
  Transmission Date: 20150528
  Serious: No
  Sender: FDA-Public Use
  Company Number: US-AMGEN-USASP2014056592

PATIENT
  Age: 65 Year
  Sex: Female
  Weight: 68.03 kg

DRUGS (1)
  1. ENBREL [Suspect]
     Active Substance: ETANERCEPT
     Indication: RHEUMATOID ARTHRITIS
     Dosage: 50 MG, QWK
     Route: 058
     Dates: start: 2011

REACTIONS (4)
  - Injection site erythema [Unknown]
  - Injection site swelling [Unknown]
  - Injection site reaction [Unknown]
  - Injection site pain [Unknown]
